FAERS Safety Report 5413872-9 (Version None)
Quarter: 2007Q3

REPORT INFORMATION
  Report Type: 
  Country: None (occurrence: None)
  Receive Date: 20070814
  Receipt Date: 20070810
  Transmission Date: 20080115
  Serious: Yes (Death, Hospitalization)
  Sender: FDA-Public Use
  Company Number: US-BRISTOL-MYERS SQUIBB COMPANY-13789748

PATIENT
  Age: 61 Year
  Sex: Male
  Weight: 65 kg

DRUGS (10)
  1. CETUXIMAB [Suspect]
     Indication: PANCREATIC CARCINOMA
     Dosage: CYC1-400MG/M2IV,D1.250MG/M2IV,D8,15,22.CYC2-.250MG/M2IV,D8,15,22
     Route: 042
     Dates: start: 20060921, end: 20061019
  2. BEVACIZUMAB [Suspect]
     Indication: PANCREATIC CARCINOMA
     Dosage: CYC1-10MG/KG IV,D1,15,CYC2-10MG/KG IV,D1,15
     Route: 042
     Dates: start: 20060921, end: 20060921
  3. GEMCITABINE HCL [Suspect]
     Indication: PANCREATIC CARCINOMA
     Dosage: CYC1-1000MG/M2IVD1,8+15 CYC2-1000MG/M2IVD1,8+15
     Route: 042
     Dates: start: 20060921, end: 20061019
  4. DANAPAROID SODIUM [Concomitant]
  5. HYDROMORPH CONTIN [Concomitant]
  6. OMEPRAZOLE [Concomitant]
  7. SENOKOT [Concomitant]
  8. HYDROMORPHONE HCL [Concomitant]
  9. OXYCONTIN [Concomitant]
     Route: 048
  10. TINZAPARIN [Concomitant]
     Route: 058

REACTIONS (8)
  - ABDOMINAL PAIN [None]
  - DUODENAL PERFORATION [None]
  - HYPOKALAEMIA [None]
  - HYPOPHOSPHATAEMIA [None]
  - MALIGNANT NEOPLASM PROGRESSION [None]
  - OBSTRUCTION GASTRIC [None]
  - THROMBOSIS [None]
  - VOMITING [None]
